FAERS Safety Report 10422067 (Version 1)
Quarter: 2014Q3

REPORT INFORMATION
  Report Type: Spontaneous
  Country: US (occurrence: US)
  Receive Date: 20140901
  Receipt Date: 20140901
  Transmission Date: 20150326
  Serious: No
  Sender: FDA-Public Use
  Company Number: US-SA-2013SA117405

PATIENT
  Sex: Female

DRUGS (1)
  1. AVAPRO [Suspect]
     Active Substance: IRBESARTAN
     Dosage: SHE WAS ON IRBESARTAN FOR 10 YEARS.
     Route: 065

REACTIONS (4)
  - Adverse event [Unknown]
  - Road traffic accident [Unknown]
  - Impaired work ability [Unknown]
  - Injury [Unknown]
